FAERS Safety Report 10273887 (Version 1)
Quarter: 2014Q3

REPORT INFORMATION
  Report Type: Spontaneous
  Country: US (occurrence: US)
  Receive Date: 20140702
  Receipt Date: 20140702
  Transmission Date: 20150326
  Serious: Yes (Other)
  Sender: FDA-Public Use
  Company Number: US-BAYER-2014-096077

PATIENT
  Age: 46 Year
  Sex: Female

DRUGS (2)
  1. LEVOTHYROXIN [Suspect]
     Active Substance: LEVOTHYROXINE
  2. BETASERON [Suspect]
     Active Substance: INTERFERON BETA-1B
     Dosage: 0.3 MG, UNK

REACTIONS (1)
  - Anosmia [None]

NARRATIVE: CASE EVENT DATE: 20140624
